FAERS Safety Report 17340187 (Version 1)
Quarter: 2020Q1

REPORT INFORMATION
  Report Type: Spontaneous
  Country: US (occurrence: US)
  Receive Date: 20200129
  Receipt Date: 20200129
  Transmission Date: 20200409
  Serious: No
  Sender: FDA-Public Use
  Company Number: US-ALLERGAN-1919016US

PATIENT
  Age: 60 Year
  Sex: Female

DRUGS (11)
  1. ALBUTEROL. [Concomitant]
     Active Substance: ALBUTEROL
     Indication: CHRONIC OBSTRUCTIVE PULMONARY DISEASE
     Dosage: UNK
     Route: 055
  2. BOTOX [Suspect]
     Active Substance: ONABOTULINUMTOXINA
     Indication: BLEPHAROSPASM
     Dosage: 90 UNITS, SINGLE
     Route: 030
     Dates: start: 201901, end: 201901
  3. BOTOX [Suspect]
     Active Substance: ONABOTULINUMTOXINA
     Indication: LARYNGEAL STENOSIS
     Dosage: UNK, SINGLE
     Route: 030
     Dates: start: 201901, end: 201901
  4. BOTOX [Suspect]
     Active Substance: ONABOTULINUMTOXINA
     Indication: MUSCLE SPASMS
     Dosage: UNK, SINGLE
     Route: 030
     Dates: start: 201901, end: 201901
  5. METAXALONE. [Concomitant]
     Active Substance: METAXALONE
     Indication: HYPOTONIA
     Dosage: UNK
  6. XANAX [Concomitant]
     Active Substance: ALPRAZOLAM
     Dosage: UNK
  7. ARTIFICIAL TEARS [Concomitant]
     Active Substance: GLYCERIN\HYPROMELLOSES\POLYETHYLENE GLYCOL 400
     Indication: DRY EYE
     Dosage: UNK
     Route: 047
  8. BOTOX [Suspect]
     Active Substance: ONABOTULINUMTOXINA
     Dosage: 5 IU, SINGLE
     Route: 030
     Dates: start: 2015, end: 2015
  9. BOTOX [Suspect]
     Active Substance: ONABOTULINUMTOXINA
     Indication: TONGUE BITING
     Dosage: 100 IU, SINGLE
     Route: 030
  10. BOTOX [Suspect]
     Active Substance: ONABOTULINUMTOXINA
     Indication: TRISMUS
     Dosage: UNK, SINGLE
     Route: 030
     Dates: start: 201901, end: 201901
  11. BOTOX [Suspect]
     Active Substance: ONABOTULINUMTOXINA
     Indication: DYSTONIA
     Dosage: UNK, SINGLE
     Route: 030
     Dates: start: 201901, end: 201901

REACTIONS (9)
  - Drug ineffective [Unknown]
  - Muscle twitching [Not Recovered/Not Resolved]
  - Eyelid pain [Not Recovered/Not Resolved]
  - Incorrect dose administered [Unknown]
  - Drug ineffective for unapproved indication [Unknown]
  - Off label use [Unknown]
  - Swelling of eyelid [Not Recovered/Not Resolved]
  - Product dose omission [Unknown]
  - Corneal abrasion [Not Recovered/Not Resolved]

NARRATIVE: CASE EVENT DATE: 2015
